FAERS Safety Report 7389708-6 (Version None)
Quarter: 2011Q2

REPORT INFORMATION
  Report Type: 
  Country: None (occurrence: None)
  Receive Date: 20110401
  Receipt Date: 20110323
  Transmission Date: 20111010
  Serious: Yes (Death)
  Sender: FDA-Public Use
  Company Number: JP-MERCK-1102USA03349

PATIENT
  Age: 61 Year
  Sex: Male
  Weight: 59 kg

DRUGS (5)
  1. METFORMIN HCL [Concomitant]
     Indication: TYPE 2 DIABETES MELLITUS
     Route: 048
     Dates: end: 20110222
  2. AMARYL [Concomitant]
     Route: 048
     Dates: start: 20110108, end: 20110222
  3. JANUVIA [Suspect]
     Indication: TYPE 2 DIABETES MELLITUS
     Route: 048
     Dates: start: 20110108, end: 20110222
  4. ACTOS [Concomitant]
     Indication: TYPE 2 DIABETES MELLITUS
     Route: 048
     Dates: end: 20110222
  5. AMARYL [Concomitant]
     Indication: TYPE 2 DIABETES MELLITUS
     Route: 048
     Dates: end: 20110107

REACTIONS (1)
  - CARDIAC ARREST [None]
